FAERS Safety Report 6056496-5 (Version None)
Quarter: 2009Q1

REPORT INFORMATION
  Report Type: 
  Country: None (occurrence: None)
  Receive Date: 20090129
  Receipt Date: 20090121
  Transmission Date: 20090719
  Serious: Yes (Other)
  Sender: FDA-Public Use
  Company Number: PHBS2009CN00580

PATIENT
  Age: 32 Year
  Sex: Female

DRUGS (2)
  1. IMATINIB MESYLATE [Suspect]
     Indication: CHRONIC MYELOID LEUKAEMIA
     Dosage: 800 MG PER DAY
  2. IMATINIB MESYLATE [Suspect]
     Dosage: 400 MG PER DAY

REACTIONS (6)
  - CONDITION AGGRAVATED [None]
  - CONJUNCTIVAL OEDEMA [None]
  - ECTROPION [None]
  - EYELID OEDEMA [None]
  - LACRIMATION INCREASED [None]
  - PERIORBITAL OEDEMA [None]
